FAERS Safety Report 25008752 (Version 1)
Quarter: 2025Q1

REPORT INFORMATION
  Report Type: Spontaneous
  Country: US (occurrence: US)
  Receive Date: 20250225
  Receipt Date: 20250225
  Transmission Date: 20250409
  Serious: No
  Sender: ABBVIE
  Company Number: US-ABBVIE-6146127

PATIENT
  Age: 38 Year

DRUGS (1)
  1. BOTOX [Suspect]
     Active Substance: ONABOTULINUMTOXINA
     Indication: Migraine
     Route: 065

REACTIONS (13)
  - Malabsorption [Unknown]
  - General physical health deterioration [Unknown]
  - Cognitive disorder [Unknown]
  - Weight decreased [Unknown]
  - Migraine [Unknown]
  - Drug ineffective [Unknown]
  - Autoimmune thyroiditis [Unknown]
  - Blood folate decreased [Unknown]
  - Blood homocysteine increased [Unknown]
  - Anti-thyroid antibody increased [Unknown]
  - Hypophagia [Unknown]
  - Vomiting [Unknown]
  - Memory impairment [Unknown]

NARRATIVE: CASE EVENT DATE: 20240101
